FAERS Safety Report 9602563 (Version 5)
Quarter: 2013Q4

REPORT INFORMATION
  Report Type: Spontaneous
  Country: US (occurrence: US)
  Receive Date: 20131007
  Receipt Date: 20131220
  Transmission Date: 20140711
  Serious: No
  Sender: FDA-Public Use
  Company Number: US-PFIZER INC-2013282551

PATIENT
  Age: 59 Year
  Sex: Female
  Weight: 58.1 kg

DRUGS (3)
  1. PREMPRO [Suspect]
     Indication: ATROPHIC VULVOVAGINITIS
     Dosage: 0.3 MG/1.5 MG, EVERY THIRD DAY
     Route: 048
     Dates: start: 2009
  2. PREMPRO [Suspect]
     Dosage: 2-3 PILL (0.3 MG/1.5 MG), WEEKLY
     Route: 048
     Dates: start: 20131010
  3. PREMPRO [Suspect]
     Dosage: 0.45MG/0.625MG, ONCE EVERY THREE DAYS
     Route: 048

REACTIONS (5)
  - Drug intolerance [Unknown]
  - Alopecia [Unknown]
  - Rotator cuff syndrome [Unknown]
  - Hyperhidrosis [Unknown]
  - Pruritus [Unknown]
